FAERS Safety Report 15427254 (Version 1)
Quarter: 2018Q3

REPORT INFORMATION
  Report Type: Report from Study
  Country: US (occurrence: US)
  Receive Date: 20180925
  Receipt Date: 20180925
  Transmission Date: 20181010
  Serious: Yes (Hospitalization, Other)
  Sender: FDA-Public Use
  Company Number: US-BAYER-2018-149785

PATIENT
  Age: 55 Year
  Sex: Male

DRUGS (4)
  1. HYDROCODONE [Concomitant]
     Active Substance: HYDROCODONE
     Dosage: 10?325 MG
  2. NEXAVAR [Suspect]
     Active Substance: SORAFENIB
     Indication: HEPATIC CANCER
     Dosage: 400 MG, BID
     Route: 048
  3. LEVOTHYROXIN [Concomitant]
     Active Substance: LEVOTHYROXINE
  4. TRAMADOL HCL CF [Concomitant]

REACTIONS (7)
  - Nausea [Not Recovered/Not Resolved]
  - Therapeutic response unexpected [Recovering/Resolving]
  - Abnormal loss of weight [Not Recovered/Not Resolved]
  - Fatigue [Not Recovered/Not Resolved]
  - Hospitalisation [Not Recovered/Not Resolved]
  - Decreased appetite [Not Recovered/Not Resolved]
  - Vomiting [Not Recovered/Not Resolved]

NARRATIVE: CASE EVENT DATE: 201808
